FAERS Safety Report 8192433-5 (Version None)
Quarter: 2012Q1

REPORT INFORMATION
  Report Type: 
  Country: None (occurrence: None)
  Receive Date: 20120308
  Receipt Date: 20120229
  Transmission Date: 20120608
  Serious: No
  Sender: FDA-Public Use
  Company Number: US-BIOGENIDEC-2010BI044449

PATIENT
  Sex: Female

DRUGS (4)
  1. TYSABRI [Suspect]
     Indication: MULTIPLE SCLEROSIS
     Route: 042
     Dates: start: 20080421, end: 20110415
  2. AVONEX [Concomitant]
     Indication: MULTIPLE SCLEROSIS
     Route: 030
     Dates: start: 20111222
  3. AVONEX [Concomitant]
     Route: 030
     Dates: start: 20001003
  4. AVONEX [Concomitant]
     Route: 030
     Dates: start: 20010101

REACTIONS (10)
  - NECK MASS [None]
  - BURNING SENSATION [None]
  - FRUSTRATION [None]
  - BACK PAIN [None]
  - LYMPHADENOPATHY [None]
  - MULTIPLE SCLEROSIS [None]
  - HEADACHE [None]
  - VOMITING [None]
  - TREMOR [None]
  - MEMORY IMPAIRMENT [None]
